FAERS Safety Report 9282445 (Version 2)
Quarter: 2013Q2

REPORT INFORMATION
  Report Type: Spontaneous
  Country: US (occurrence: None)
  Receive Date: 20130506
  Receipt Date: 20130514
  Transmission Date: 20140414
  Serious: Yes (Other)
  Sender: FDA-Public Use
  Company Number: SIM_00476_2013

PATIENT
  Sex: Female

DRUGS (1)
  1. IRRITATED EYE RELIEF [Suspect]
     Indication: PRODUCT USED FOR UNKNOWN INDICATION
     Dosage: (ONE DROP/USED A COUPLE OF TIMES)
     Route: 047
     Dates: start: 20130201, end: 20130201

REACTIONS (2)
  - Hypersensitivity [None]
  - Feeling abnormal [None]
